FAERS Safety Report 18246391 (Version 1)
Quarter: 2020Q3

REPORT INFORMATION
  Report Type: Spontaneous
  Country: NL (occurrence: NL)
  Receive Date: 20200909
  Receipt Date: 20200909
  Transmission Date: 20201103
  Serious: Yes (Other)
  Sender: FDA-Public Use
  Company Number: NL-TEVA-2020-NL-1824580

PATIENT
  Age: 65 Year
  Sex: Female
  Weight: 130 kg

DRUGS (1)
  1. CLARITROMYCINE TABLET 500MG / BRAND NAME NOT SPECIFIED [Suspect]
     Active Substance: CLARITHROMYCIN
     Indication: ERYSIPELAS
     Dosage: 2 DOSAGE FORMS DAILY;
     Dates: start: 20200731, end: 20200803

REACTIONS (1)
  - Hallucination, visual [Recovered/Resolved]

NARRATIVE: CASE EVENT DATE: 20200802
